FAERS Safety Report 4972247-7 (Version None)
Quarter: 2006Q1

REPORT INFORMATION
  Report Type: 
  Country: None (occurrence: None)
  Receive Date: 20060214
  Receipt Date: 20060103
  Transmission Date: 20060701
  Serious: No
  Sender: FDA-Public Use
  Company Number: 200610237US

PATIENT
  Sex: Female

DRUGS (1)
  1. INSULIN GLULISINE (APIDRA) [Suspect]
     Dates: start: 20050401

REACTIONS (3)
  - DYSPNOEA [None]
  - UNEVALUABLE EVENT [None]
  - URTICARIA [None]
